FAERS Safety Report 21769166 (Version 1)
Quarter: 2022Q4

REPORT INFORMATION
  Report Type: Report from Study
  Country: US (occurrence: US)
  Receive Date: 20221222
  Receipt Date: 20221222
  Transmission Date: 20230113
  Serious: Yes (Hospitalization)
  Sender: FDA-Public Use
  Company Number: US-ABBVIE-4245350

PATIENT
  Sex: Female
  Weight: 63.502 kg

DRUGS (3)
  1. SYNTHROID [Suspect]
     Active Substance: LEVOTHYROXINE SODIUM
     Indication: Hypothyroidism
     Dosage: 75 MICROGRAM?START DATE TEXT: BETWEEN 2010 AND 2011
     Route: 048
  2. DEPAKOTE [Concomitant]
     Active Substance: DIVALPROEX SODIUM
     Indication: Product used for unknown indication
  3. ESTRACE [Concomitant]
     Active Substance: ESTRADIOL
     Indication: Product used for unknown indication

REACTIONS (12)
  - Urinary tract infection [Not Recovered/Not Resolved]
  - Asthenia [Recovering/Resolving]
  - Feeding disorder [Not Recovered/Not Resolved]
  - Cardiac failure congestive [Recovering/Resolving]
  - Drug ineffective [Recovered/Resolved]
  - Nausea [Not Recovered/Not Resolved]
  - Drug ineffective [Recovered/Resolved]
  - Decreased appetite [Not Recovered/Not Resolved]
  - Arrhythmia [Recovered/Resolved]
  - Dehydration [Recovering/Resolving]
  - Depression [Unknown]
  - Anxiety [Unknown]

NARRATIVE: CASE EVENT DATE: 20180101
